FAERS Safety Report 8355826 (Version 6)
Quarter: 2013Q3

REPORT INFORMATION
  Report Type: Report from Study
  Country: CA (occurrence: CA)
  Receive Date: 20120126
  Receipt Date: 20130716
  Transmission Date: 20140515
  Serious: Yes (Other)
  Sender: FDA-Public Use
  Company Number: CA-BRISTOL-MYERS SQUIBB COMPANY-16355554

PATIENT
  Age: 63 Year
  Sex: Female

DRUGS (5)
  1. DIAMICRON [Suspect]
     Indication: TYPE 2 DIABETES MELLITUS
     Dosage: 07JUN-26AUG11,30MG?26AUG11-5JUL2012:60MG?5JUL2012-ONG:120MG
     Dates: start: 20110607
  2. PLACEBO [Suspect]
     Indication: TYPE 2 DIABETES MELLITUS
     Dosage: LAST:01MAR13
     Dates: start: 20100824
  3. ALTACE [Suspect]
     Route: 048
     Dates: end: 20120114
  4. ASPIRIN [Concomitant]
  5. ATIVAN [Concomitant]
     Dates: start: 20111201

REACTIONS (1)
  - Angioedema [Recovered/Resolved]
